FAERS Safety Report 8313341-2 (Version None)
Quarter: 2012Q2

REPORT INFORMATION
  Report Type: 
  Country: None (occurrence: None)
  Receive Date: 20120426
  Receipt Date: 20120417
  Transmission Date: 20120825
  Serious: Yes (Other)
  Sender: FDA-Public Use
  Company Number: PHHY2011PL104350

PATIENT
  Age: 61 Year
  Sex: Male

DRUGS (3)
  1. IMATINIB MESYLATE [Suspect]
     Dosage: 300 MG, UNK
     Dates: end: 20061201
  2. IMATINIB MESYLATE [Suspect]
     Dosage: 300 MG, UNK
     Route: 065
     Dates: end: 20080901
  3. IMATINIB MESYLATE [Suspect]
     Dosage: 400 MG, UNK
     Dates: start: 20040401

REACTIONS (5)
  - AORTIC ANEURYSM [None]
  - DRUG RESISTANCE [None]
  - THERAPEUTIC RESPONSE DECREASED [None]
  - LEUKAEMIA RECURRENT [None]
  - THROMBOCYTOPENIA [None]
